FAERS Safety Report 21714196 (Version 1)
Quarter: 2022Q4

REPORT INFORMATION
  Report Type: Spontaneous
  Country: US (occurrence: US)
  Receive Date: 20221212
  Receipt Date: 20221212
  Transmission Date: 20230112
  Serious: No
  Sender: FDA-Public Use
  Company Number: US-SA-SAC20221209000479

PATIENT
  Age: 28 Year
  Sex: Female
  Weight: 65.7 kg

DRUGS (2)
  1. DUPIXENT [Suspect]
     Active Substance: DUPILUMAB
     Indication: Dermatitis atopic
     Dosage: 300MG,QOW
     Route: 058
     Dates: start: 20220602
  2. NATAZIA [Concomitant]
     Active Substance: DIENOGEST\ESTRADIOL VALERATE
     Dosage: 3-2-1

REACTIONS (2)
  - Burning sensation [Not Recovered/Not Resolved]
  - Exfoliative rash [Not Recovered/Not Resolved]

NARRATIVE: CASE EVENT DATE: 20220101
